FAERS Safety Report 4596053-0 (Version None)
Quarter: 2005Q1

REPORT INFORMATION
  Report Type: 
  Country: None (occurrence: None)
  Receive Date: 20050224
  Receipt Date: 20050208
  Transmission Date: 20050727
  Serious: Yes (Other)
  Sender: FDA-Public Use
  Company Number: 430002M05FRA

PATIENT
  Age: 30 Year
  Sex: Female

DRUGS (1)
  1. NOVANTRONE [Suspect]
     Indication: MULTIPLE SCLEROSIS
     Dosage: 20 MG, 6 IN 1 CYCLE, INTRAVENOUS
     Route: 042
     Dates: start: 20030101, end: 20040101

REACTIONS (1)
  - PREMATURE MENOPAUSE [None]
